FAERS Safety Report 20391240 (Version 1)
Quarter: 2022Q1

REPORT INFORMATION
  Report Type: Spontaneous
  Country: US (occurrence: None)
  Receive Date: 20220127
  Receipt Date: 20220127
  Transmission Date: 20220424
  Serious: No
  Sender: FDA-Public Use
  Company Number: None

PATIENT
  Age: 65 Year
  Sex: Female
  Weight: 55.3 kg

DRUGS (6)
  1. GLIPIZIDE [Suspect]
     Active Substance: GLIPIZIDE
     Indication: Type 2 diabetes mellitus
     Dosage: FREQUENCY : TWICE A DAY;?
     Route: 048
     Dates: start: 20210927, end: 20211005
  2. ATORVASTATIN [Concomitant]
     Active Substance: ATORVASTATIN
     Dates: start: 20210409
  3. BENZTROPINE MESYLATE [Concomitant]
     Active Substance: BENZTROPINE MESYLATE
     Dates: start: 20210409
  4. LEVOFLOXACIN [Concomitant]
     Active Substance: LEVOFLOXACIN
     Dates: start: 20210927
  5. METRONIDAZOLE [Concomitant]
     Active Substance: METRONIDAZOLE
     Dates: start: 20210927
  6. RISPERIDONE [Concomitant]
     Active Substance: RISPERIDONE
     Dates: start: 20210409

REACTIONS (9)
  - Pain in extremity [None]
  - Dizziness [None]
  - Vision blurred [None]
  - Hyperglycaemia [None]
  - Treatment noncompliance [None]
  - Fear of injection [None]
  - Cerebral infarction [None]
  - Lens disorder [None]
  - Oedema [None]

NARRATIVE: CASE EVENT DATE: 20211005
